FAERS Safety Report 4767031-3 (Version None)
Quarter: 2005Q3

REPORT INFORMATION
  Report Type: 
  Country: None (occurrence: None)
  Receive Date: 20050913
  Receipt Date: 20050901
  Transmission Date: 20060218
  Serious: Yes (Hospitalization, Disabling)
  Sender: FDA-Public Use
  Company Number: CA-JNJFOC-20050900837

PATIENT
  Sex: Female

DRUGS (3)
  1. REMICADE [Suspect]
     Route: 042
  2. REMICADE [Suspect]
     Route: 042
  3. REMICADE [Suspect]
     Indication: CROHN'S DISEASE
     Route: 042

REACTIONS (13)
  - ABASIA [None]
  - ASTHENIA [None]
  - CHILLS [None]
  - COORDINATION ABNORMAL [None]
  - ERYTHEMA [None]
  - EYE PAIN [None]
  - FALL [None]
  - HEADACHE [None]
  - HYPOAESTHESIA [None]
  - HYPOAESTHESIA ORAL [None]
  - MOVEMENT DISORDER [None]
  - OEDEMA PERIPHERAL [None]
  - TREMOR [None]
